FAERS Safety Report 21280535 (Version 1)
Quarter: 2022Q3

REPORT INFORMATION
  Report Type: Spontaneous
  Country: GB (occurrence: GB)
  Receive Date: 20220901
  Receipt Date: 20220901
  Transmission Date: 20221027
  Serious: Yes (Other)
  Sender: FDA-Public Use
  Company Number: None

PATIENT
  Age: 30 Year
  Sex: Male
  Weight: 81 kg

DRUGS (13)
  1. LORATADINE [Suspect]
     Active Substance: LORATADINE
     Indication: Product used for unknown indication
     Dosage: 10 MILLIGRAM
     Route: 065
     Dates: start: 20220823
  2. CEPHALEXIN [Concomitant]
     Active Substance: CEPHALEXIN
     Dosage: 1 DOSAGE FORM, TID
     Route: 065
     Dates: start: 20220525, end: 20220601
  3. CLOBAZAM [Concomitant]
     Active Substance: CLOBAZAM
     Dosage: 1 DOSAGE FORM, BID
     Route: 065
     Dates: start: 20220104
  4. CHOLECALCIFEROL [Concomitant]
     Active Substance: CHOLECALCIFEROL
     Dosage: 1 DOSAGE FORM, QD
     Route: 065
     Dates: start: 20220104
  5. ISOPROPYL MYRISTATE\MINERAL OIL [Concomitant]
     Active Substance: ISOPROPYL MYRISTATE\MINERAL OIL
     Dosage: UNK UNK, PRN (AS NECESSARY)
     Route: 065
     Dates: start: 20220104
  6. LAMOTRIGINE [Concomitant]
     Active Substance: LAMOTRIGINE
     Dosage: 1 DOSAGE FORM, QD
     Route: 065
     Dates: start: 20220531, end: 20220630
  7. LEVETIRACETAM [Concomitant]
     Active Substance: LEVETIRACETAM
     Dosage: 1 DOSAGE FORM, BID
     Route: 065
     Dates: start: 20220531
  8. MOVICOL [Concomitant]
     Active Substance: POLYETHYLENE GLYCOL 3350\POTASSIUM CHLORIDE\SODIUM BICARBONATE\SODIUM CHLORIDE
     Dosage: 1 DOSAGE FORM, PRN (AS NECESSARY)
     Route: 065
     Dates: start: 20220601, end: 20220602
  9. OLIVE OIL [Concomitant]
     Active Substance: OLIVE OIL
     Dosage: 1 DOSAGE FORM, BID
     Route: 065
     Dates: start: 20220104
  10. ACETAMINOPHEN [Concomitant]
     Active Substance: ACETAMINOPHEN
     Dosage: 2 DOSAGE FORM, PRN (AS NECESSARY)
     Route: 065
     Dates: start: 20220104
  11. RISPERIDONE [Concomitant]
     Active Substance: RISPERIDONE
     Dosage: 1 DOSAGE FORM, QD
     Route: 065
     Dates: start: 20220104
  12. TOPIRAMATE [Concomitant]
     Active Substance: TOPIRAMATE
     Dosage: 1 DOSAGE FORM, BID
     Route: 065
     Dates: start: 20220104
  13. Uvistat [Concomitant]
     Dosage: UNK (APPLY PRIOR TO GOING INTO SUNLIGHT)
     Route: 065
     Dates: start: 20220104

REACTIONS (1)
  - Drug hypersensitivity [Unknown]

NARRATIVE: CASE EVENT DATE: 20220823
